FAERS Safety Report 23656692 (Version 5)
Quarter: 2025Q4

REPORT INFORMATION
  Report Type: Report from Study
  Country: EU (occurrence: EU)
  Receive Date: 20240321
  Receipt Date: 20251027
  Transmission Date: 20260118
  Serious: Yes (Hospitalization, Other)
  Sender: ABBVIE
  Company Number: EU-ABBVIE-5682052

PATIENT
  Age: 72 Year
  Sex: Male
  Weight: 64 kg

DRUGS (19)
  1. HUMIRA [Suspect]
     Active Substance: ADALIMUMAB
     Indication: Colitis ulcerative
     Route: 058
     Dates: start: 20141106, end: 20150617
  2. HUMIRA [Suspect]
     Active Substance: ADALIMUMAB
     Route: 058
     Dates: start: 201508, end: 20151007
  3. HUMIRA [Suspect]
     Active Substance: ADALIMUMAB
     Route: 058
     Dates: start: 201311, end: 20140226
  4. HUMIRA [Suspect]
     Active Substance: ADALIMUMAB
     Route: 058
     Dates: start: 20131002, end: 20131002
  5. HUMIRA [Suspect]
     Active Substance: ADALIMUMAB
     Route: 058
     Dates: start: 201310, end: 201311
  6. HUMIRA [Suspect]
     Active Substance: ADALIMUMAB
     Route: 058
     Dates: start: 20140227, end: 20141105
  7. PENTASA [Concomitant]
     Active Substance: MESALAMINE
     Indication: Colitis ulcerative
     Route: 048
     Dates: start: 20120220
  8. ASPIRIN [Concomitant]
     Active Substance: ASPIRIN
     Indication: Cerebrovascular accident prophylaxis
     Route: 048
     Dates: start: 20140514
  9. LATANOTEARS [Concomitant]
     Indication: Dry eye
     Dosage: TIME INTERVAL: AS NECESSARY: 1 GTT (DROP(S))
     Route: 047
     Dates: start: 201405
  10. PERINDOPRIL [Concomitant]
     Active Substance: PERINDOPRIL
     Indication: Hypertension
     Route: 048
  11. BUDESONIDE\FORMOTEROL FUMARATE [Concomitant]
     Active Substance: BUDESONIDE\FORMOTEROL FUMARATE
     Indication: Dyspnoea
     Dosage: VR NEBULISATIE?2 PUFF
     Route: 055
     Dates: start: 20180208
  12. MUCOCLEAR [Concomitant]
     Indication: Dyspnoea
     Dosage: TIME INTERVAL: AS NECESSARY
     Route: 055
     Dates: start: 20180220
  13. VENTOLIN [Concomitant]
     Active Substance: ALBUTEROL SULFATE
     Indication: Dyspnoea
     Dosage: TIME INTERVAL: AS NECESSARY
     Route: 055
     Dates: start: 20180220
  14. ACLASTA [Concomitant]
     Active Substance: ZOLEDRONIC ACID
     Indication: Osteoporosis
     Route: 042
     Dates: start: 201806
  15. DEXTROMETHORPHAN HYDROBROMIDE [Concomitant]
     Active Substance: DEXTROMETHORPHAN HYDROBROMIDE
     Indication: Secretion discharge
     Dosage: TIME INTERVAL: AS NECESSARY
     Dates: start: 2018
  16. CACIT [Concomitant]
     Indication: Pathological fracture prophylaxis
     Route: 048
     Dates: start: 20200912
  17. ATORVASTATIN [Concomitant]
     Active Substance: ATORVASTATIN
     Indication: Hypercholesterolaemia
     Route: 048
     Dates: start: 20200912
  18. MEDROL [Concomitant]
     Active Substance: METHYLPREDNISOLONE
     Indication: Colitis ulcerative
     Route: 048
     Dates: start: 20210317
  19. DAFALGAN [Concomitant]
     Active Substance: ACETAMINOPHEN
     Indication: Rectal abscess
     Dosage: TIME INTERVAL: AS NECESSARY
     Route: 048
     Dates: start: 20230801

REACTIONS (1)
  - Extremity necrosis [Not Recovered/Not Resolved]

NARRATIVE: CASE EVENT DATE: 20231107
